FAERS Safety Report 10956955 (Version 3)
Quarter: 2015Q3

REPORT INFORMATION
  Report Type: Spontaneous
  Country: IT (occurrence: IT)
  Receive Date: 20150326
  Receipt Date: 20150715
  Transmission Date: 20151125
  Serious: Yes (Hospitalization)
  Sender: FDA-Public Use
  Company Number: IT-PFIZER INC-2015103921

PATIENT
  Age: 83 Year
  Sex: Female

DRUGS (4)
  1. COMBISARTAN [Concomitant]
     Active Substance: HYDROCHLOROTHIAZIDE\LOSARTAN POTASSIUM
  2. CARDURA [Concomitant]
     Active Substance: DOXAZOSIN MESYLATE
  3. BASSADO [Suspect]
     Active Substance: DOXYCYCLINE HYCLATE
     Indication: ERYSIPELAS
     Dosage: 1 DF, DAILY
     Route: 048
     Dates: start: 20150313, end: 20150315
  4. LINFOGUARD [Concomitant]
     Dosage: UNK, DAILY
     Dates: start: 20150313, end: 20150315

REACTIONS (3)
  - Erythema [Recovered/Resolved]
  - Pruritus [Recovered/Resolved]
  - Face oedema [Recovered/Resolved]

NARRATIVE: CASE EVENT DATE: 20150313
